FAERS Safety Report 9386724 (Version 3)
Quarter: 2013Q3

REPORT INFORMATION
  Report Type: Spontaneous
  Country: US (occurrence: US)
  Receive Date: 20130708
  Receipt Date: 20130909
  Transmission Date: 20140515
  Serious: No
  Sender: FDA-Public Use
  Company Number: US-PFIZER INC-2013197091

PATIENT
  Age: 64 Year
  Sex: Male

DRUGS (1)
  1. XALKORI [Suspect]
     Indication: LUNG NEOPLASM MALIGNANT
     Dosage: 250 MG,  2X/DAY (1 CAPSULE TWICE DAILY)
     Route: 048
     Dates: start: 201306, end: 20130804

REACTIONS (5)
  - Incorrect dose administered [Unknown]
  - Flatulence [Recovered/Resolved]
  - Dyspepsia [Recovered/Resolved]
  - Disease progression [Unknown]
  - Lung neoplasm malignant [Unknown]
